FAERS Safety Report 7401142-9 (Version None)
Quarter: 2011Q2

REPORT INFORMATION
  Report Type: 
  Country: None (occurrence: None)
  Receive Date: 20110407
  Receipt Date: 20110328
  Transmission Date: 20111010
  Serious: Yes (Other)
  Sender: FDA-Public Use
  Company Number: US-PURDUE-USA_2008_0034114

PATIENT
  Sex: Male

DRUGS (2)
  1. OXYCONTIN [Suspect]
     Indication: BACK PAIN
     Dates: start: 19980101, end: 20031201
  2. OXYCONTIN [Suspect]
     Indication: ARTHRALGIA

REACTIONS (4)
  - FATIGUE [None]
  - SUICIDAL IDEATION [None]
  - IMPAIRED WORK ABILITY [None]
  - DEPRESSION [None]
